FAERS Safety Report 26164909 (Version 1)
Quarter: 2025Q4

REPORT INFORMATION
  Report Type: Report from Study
  Country: IN (occurrence: IN)
  Receive Date: 20251216
  Receipt Date: 20251216
  Transmission Date: 20260117
  Serious: Yes (Other)
  Sender: ROCHE
  Company Number: IN-ROCHE-10000456248

PATIENT
  Age: 30 Year
  Sex: Male

DRUGS (5)
  1. CELLCEPT [Suspect]
     Active Substance: MYCOPHENOLATE MOFETIL
     Indication: Renal transplant
     Dosage: 500 MG T.I.D
     Route: 048
     Dates: start: 20230705
  2. TRIAMCINOLONE ACETONIDE [Concomitant]
     Active Substance: TRIAMCINOLONE ACETONIDE
     Dosage: 10MG/DAY
  3. METHYLPREDNISOLONE [Concomitant]
     Active Substance: METHYLPREDNISOLONE
  4. AMLIP [Concomitant]
  5. MATOPROLOL [Concomitant]
     Dosage: XL 50-10 D

REACTIONS (3)
  - Transplant dysfunction [Not Recovered/Not Resolved]
  - Transplant rejection [Unknown]
  - IgA nephropathy [Unknown]

NARRATIVE: CASE EVENT DATE: 20250901
